FAERS Safety Report 6815421-7 (Version None)
Quarter: 2010Q3

REPORT INFORMATION
  Report Type: 
  Country: None (occurrence: None)
  Receive Date: 20100702
  Receipt Date: 20100622
  Transmission Date: 20110219
  Serious: Yes (Other)
  Sender: FDA-Public Use
  Company Number: CA-JNJFOC-20100607392

PATIENT
  Sex: Male
  Weight: 64 kg

DRUGS (5)
  1. REMICADE [Suspect]
     Indication: CROHN'S DISEASE
     Route: 042
  2. MICARDIS [Concomitant]
     Indication: HYPERTENSION
     Route: 065
  3. METHOTREXATE [Concomitant]
     Route: 065
  4. FLOMAX [Concomitant]
     Route: 065
  5. CALCIUM CARBONATE [Concomitant]
     Route: 065

REACTIONS (2)
  - FLANK PAIN [None]
  - NEPHROLITHIASIS [None]
